FAERS Safety Report 8921737 (Version 2)
Quarter: 2013Q1

REPORT INFORMATION
  Report Type: Spontaneous
  Country: JP (occurrence: JP)
  Receive Date: 20121121
  Receipt Date: 20130107
  Transmission Date: 20140127
  Serious: Yes (Hospitalization)
  Sender: FDA-Public Use
  Company Number: JP-JNJFOC-20121107139

PATIENT
  Age: 19 Year
  Sex: Female

DRUGS (6)
  1. RISPERDAL CONSTA [Suspect]
     Indication: AUTISM SPECTRUM DISORDER
     Route: 030
  2. ZYPREXA [Suspect]
     Indication: AUTISM SPECTRUM DISORDER
     Route: 065
  3. ZYPREXA [Suspect]
     Indication: AUTISM SPECTRUM DISORDER
     Route: 065
  4. LEVOMEPROMAZINE HYDROCHLORIDE [Concomitant]
     Route: 030
  5. LEVOMEPROMAZINE HYDROCHLORIDE [Concomitant]
     Route: 030
  6. CLONAZEPAM [Concomitant]
     Route: 048

REACTIONS (1)
  - Paroxysmal perceptual alteration [Recovered/Resolved]
